FAERS Safety Report 4465396-3 (Version None)
Quarter: 2004Q3

REPORT INFORMATION
  Report Type: 
  Country: None (occurrence: None)
  Receive Date: 20040929
  Receipt Date: 20040914
  Transmission Date: 20050211
  Serious: Yes (Hospitalization)
  Sender: FDA-Public Use
  Company Number: 200405466

PATIENT
  Age: 11 Year
  Sex: Female
  Weight: 32 kg

DRUGS (4)
  1. BOTOX PURIFIED NEUROTOXIN COMPLEX [Suspect]
     Indication: MUSCLE SPASTICITY
     Dosage: 300 UNITS PRN IM
     Route: 030
  2. BOTOX PURIFIED NEUROTOXIN COMPLEX [Suspect]
     Indication: TORTICOLLIS
     Dosage: 300 UNITS PRN IM
     Route: 030
  3. PROPOFOL / NITROUS [Concomitant]
  4. PHENOL [Concomitant]

REACTIONS (9)
  - ASTHENIA [None]
  - CONSTIPATION [None]
  - DYSURIA [None]
  - ILEUS [None]
  - NAUSEA [None]
  - POST PROCEDURAL COMPLICATION [None]
  - PYREXIA [None]
  - VOMITING [None]
  - WEIGHT DECREASED [None]
